FAERS Safety Report 7972375-8 (Version None)
Quarter: 2011Q4

REPORT INFORMATION
  Report Type: 
  Country: None (occurrence: None)
  Receive Date: 20111213
  Receipt Date: 20111205
  Transmission Date: 20120403
  Serious: No
  Sender: FDA-Public Use
  Company Number: US-BIOGENIDEC-2011BI046501

PATIENT
  Sex: Female

DRUGS (3)
  1. TYSABRI [Suspect]
     Indication: MULTIPLE SCLEROSIS
     Route: 042
     Dates: start: 20110804
  2. TYSABRI [Suspect]
     Route: 042
     Dates: start: 20080409, end: 20081119
  3. PROZAC [Concomitant]
     Indication: PRODUCT USED FOR UNKNOWN INDICATION

REACTIONS (6)
  - MEMORY IMPAIRMENT [None]
  - SPEECH DISORDER [None]
  - DYSARTHRIA [None]
  - REPETITIVE SPEECH [None]
  - CATARACT [None]
  - BALANCE DISORDER [None]
